FAERS Safety Report 10028476 (Version 1)
Quarter: 2014Q1

REPORT INFORMATION
  Report Type: Spontaneous
  Country: US (occurrence: None)
  Receive Date: 20140320
  Receipt Date: 20140320
  Transmission Date: 20141002
  Serious: Yes (Hospitalization)
  Sender: FDA-Public Use
  Company Number: 2239285

PATIENT
  Age: 44 Year
  Sex: Male

DRUGS (2)
  1. GEMCITABINE HYDROCHLORIDE [Suspect]
     Indication: PANCREATIC CARCINOMA METASTATIC
     Dosage: 1000 MG/M 2 MILLIGRAM(S)/SQ. METER (CYCLICAL)?
  2. CISPLATIN [Suspect]
     Indication: PANCREATIC CARCINOMA METASTATIC
     Dosage: 50 MG/M 2 MILLIGRAM(S)/SQ. METER (CYCLICAL)?

REACTIONS (4)
  - Aortic dissection [None]
  - Blood pressure increased [None]
  - Pleural effusion [None]
  - Atelectasis [None]
